FAERS Safety Report 6039255-9 (Version None)
Quarter: 2009Q1

REPORT INFORMATION
  Report Type: 
  Country: None (occurrence: None)
  Receive Date: 20090115
  Receipt Date: 20090112
  Transmission Date: 20090719
  Serious: Yes (Other)
  Sender: FDA-Public Use
  Company Number: PHHY2008ES32346

PATIENT
  Age: 74 Year
  Sex: Female

DRUGS (5)
  1. EXFORGE [Suspect]
     Dosage: 10 MG
     Dates: start: 20081128
  2. EXFORGE [Suspect]
     Dosage: 5 MG
     Dates: start: 20081211, end: 20081213
  3. SEGURIL [Concomitant]
     Indication: DIURETIC THERAPY
  4. PANTECTA [Concomitant]
  5. BELOQUEN RETARD [Concomitant]
     Dosage: 100 MG

REACTIONS (5)
  - CELLULITIS [None]
  - ERYTHEMA [None]
  - HYPERTENSION [None]
  - OEDEMA PERIPHERAL [None]
  - PAIN IN EXTREMITY [None]
